FAERS Safety Report 21664484 (Version 1)
Quarter: 2022Q4

REPORT INFORMATION
  Report Type: Spontaneous
  Country: US (occurrence: None)
  Receive Date: 20221129
  Receipt Date: 20221129
  Transmission Date: 20230113
  Serious: Yes (Death)
  Sender: FDA-Public Use
  Company Number: None

PATIENT
  Age: 64 Year
  Sex: Male
  Weight: 91.63 kg

DRUGS (26)
  1. ABIRATERONE [Suspect]
     Active Substance: ABIRATERONE
     Indication: Prostate cancer
     Dosage: FREQUENCY : DAILY;?
     Route: 048
  2. ACIDOPHILUS/PECTIN [Concomitant]
  3. AMLODIPINE [Concomitant]
  4. ARANSEP [Concomitant]
  5. ATENOLOL [Concomitant]
     Active Substance: ATENOLOL
  6. ATORVASTATIN [Concomitant]
  7. BISACODYL [Concomitant]
  8. CALCIUM CARBONATE [Concomitant]
  9. MELATONIN [Concomitant]
     Active Substance: MELATONIN
  10. SENNA [Concomitant]
  11. FERROUS SULFATE [Concomitant]
  12. FOLIC ACID [Concomitant]
  13. IBUPROFEN [Concomitant]
  14. LOSARTAN [Concomitant]
  15. LUPRON [Concomitant]
     Active Substance: LEUPROLIDE ACETATE
  16. MELATONIN [Concomitant]
     Active Substance: MELATONIN
  17. METHOCARBAMOL [Concomitant]
     Active Substance: METHOCARBAMOL
  18. OMEPRAZOLE [Concomitant]
  19. OXYCODONE [Concomitant]
  20. PERCOCET [Concomitant]
  21. PREGABALIN [Concomitant]
  22. RETACRIT [Concomitant]
     Active Substance: EPOETIN ALFA-EPBX
  23. TIZANIDINE [Concomitant]
  24. TYLENOL [Concomitant]
  25. VITAMIN B12 [Concomitant]
  26. VITAMIN C [Concomitant]

REACTIONS (1)
  - Death [None]
